FAERS Safety Report 25627402 (Version 1)
Quarter: 2025Q3

REPORT INFORMATION
  Report Type: Spontaneous
  Country: US (occurrence: US)
  Receive Date: 20250731
  Receipt Date: 20250731
  Transmission Date: 20251020
  Serious: No
  Sender: Kenvue
  Company Number: US-KENVUE-20250703832

PATIENT
  Age: 79 Year
  Sex: Female

DRUGS (2)
  1. MENS ROGAINE EXTRA STRENGTH [Suspect]
     Active Substance: MINOXIDIL
     Indication: Alopecia
     Dosage: A GOLF BALL SIZE, TWICE DAILY
     Route: 065
     Dates: start: 2025
  2. MENS ROGAINE EXTRA STRENGTH [Suspect]
     Active Substance: MINOXIDIL
     Dosage: A GOLF BALL SIZE, TWICE DAILY (FOR ABOUT TEN YEARS)
     Route: 065

REACTIONS (5)
  - Alopecia [Recovering/Resolving]
  - Off label use [Unknown]
  - Expired product administered [Unknown]
  - Poor quality product administered [Unknown]
  - Product container issue [Unknown]

NARRATIVE: CASE EVENT DATE: 20250401
